FAERS Safety Report 4789768-2 (Version None)
Quarter: 2005Q3

REPORT INFORMATION
  Report Type: 
  Country: None (occurrence: None)
  Receive Date: 20050914
  Receipt Date: 20040920
  Transmission Date: 20060218
  Serious: Yes (Death, Hospitalization)
  Sender: FDA-Public Use
  Company Number: 163-20785-04090528

PATIENT
  Age: 67 Year
  Sex: Male

DRUGS (5)
  1. THALOMID [Suspect]
     Indication: RENAL CELL CARCINOMA STAGE UNSPECIFIED
     Dosage: 100 MG, QHS, ORAL
     Route: 048
     Dates: start: 20040827, end: 20040101
  2. BEXTRA [Concomitant]
  3. PREDNISONE [Concomitant]
  4. ATARAX [Concomitant]
  5. INTERFERON ALFA 2B (INTERFERON ALFA-2B) [Concomitant]

REACTIONS (6)
  - ASTHENIA [None]
  - CACHEXIA [None]
  - DEATH [None]
  - DISEASE PROGRESSION [None]
  - FULL BLOOD COUNT DECREASED [None]
  - METASTATIC NEOPLASM [None]
